FAERS Safety Report 15555689 (Version 1)
Quarter: 2018Q4

REPORT INFORMATION
  Report Type: Report from Study
  Country: US (occurrence: US)
  Receive Date: 20181026
  Receipt Date: 20181026
  Transmission Date: 20190205
  Serious: Yes (Hospitalization)
  Sender: FDA-Public Use
  Company Number: US-JNJFOC-20181036017

PATIENT
  Age: 74 Year
  Sex: Female

DRUGS (41)
  1. TIMOLOL. [Concomitant]
     Active Substance: TIMOLOL
  2. LOMOTIL [Concomitant]
     Active Substance: ATROPINE SULFATE\DIPHENOXYLATE HYDROCHLORIDE
  3. GLUCOSAMINE [Concomitant]
     Active Substance: GLUCOSAMINE
  4. IMBRUVICA [Suspect]
     Active Substance: IBRUTINIB
     Indication: CHRONIC LYMPHOCYTIC LEUKAEMIA
     Route: 048
     Dates: start: 20161105
  5. IMBRUVICA [Concomitant]
     Active Substance: IBRUTINIB
     Indication: BREAST CANCER FEMALE
     Dates: start: 20180421
  6. METFORMIN [Concomitant]
     Active Substance: METFORMIN HYDROCHLORIDE
  7. LISINOPRIL. [Concomitant]
     Active Substance: LISINOPRIL
  8. VITAMIN C [Concomitant]
     Active Substance: ASCORBIC ACID
  9. ASPIRIN. [Concomitant]
     Active Substance: ASPIRIN
  10. FAMOTIDINE. [Concomitant]
     Active Substance: FAMOTIDINE
  11. NORCO [Concomitant]
     Active Substance: ACETAMINOPHEN\HYDROCODONE BITARTRATE
  12. TRIAMCINOLONE [Concomitant]
     Active Substance: TRIAMCINOLONE
  13. IMBRUVICA [Suspect]
     Active Substance: IBRUTINIB
     Indication: CHRONIC LYMPHOCYTIC LEUKAEMIA
     Route: 048
     Dates: start: 20180616
  14. HUMALOG [Concomitant]
     Active Substance: INSULIN LISPRO
  15. ACTOS [Concomitant]
     Active Substance: PIOGLITAZONE HYDROCHLORIDE
  16. PLAVIX [Concomitant]
     Active Substance: CLOPIDOGREL BISULFATE
  17. VESICARE [Concomitant]
     Active Substance: SOLIFENACIN SUCCINATE
  18. PERCOCET [Concomitant]
     Active Substance: ACETAMINOPHEN\OXYCODONE HYDROCHLORIDE
  19. MULTIVITAMINS [Concomitant]
     Active Substance: VITAMINS
  20. JANUVIA [Concomitant]
     Active Substance: SITAGLIPTIN PHOSPHATE
  21. NORVASC [Concomitant]
     Active Substance: AMLODIPINE BESYLATE
  22. NITROGLYCERIN. [Concomitant]
     Active Substance: NITROGLYCERIN
  23. IMBRUVICA [Suspect]
     Active Substance: IBRUTINIB
     Indication: BREAST CANCER FEMALE
     Route: 048
     Dates: start: 20180616
  24. LASIX [Concomitant]
     Active Substance: FUROSEMIDE
  25. PROCRIT [Concomitant]
     Active Substance: ERYTHROPOIETIN
  26. STOOL SOFTENER (DOCUSATE) [Concomitant]
     Active Substance: DOCUSATE
  27. FISH OIL [Concomitant]
     Active Substance: FISH OIL
  28. IMBRUVICA [Suspect]
     Active Substance: IBRUTINIB
     Indication: BREAST CANCER FEMALE
     Route: 048
     Dates: start: 20161105
  29. CARVEDILOL. [Concomitant]
     Active Substance: CARVEDILOL
  30. ZOLPIDEM [Concomitant]
     Active Substance: ZOLPIDEM\ZOLPIDEM TARTRATE
  31. PILOCARPINE. [Concomitant]
     Active Substance: PILOCARPINE
  32. BRIMONIDINE [Concomitant]
     Active Substance: BRIMONIDINE TARTRATE
  33. ALLOPURINOL. [Concomitant]
     Active Substance: ALLOPURINOL
  34. ERGOCALCIFEROL. [Concomitant]
     Active Substance: ERGOCALCIFEROL
  35. ANASTROZOLE. [Concomitant]
     Active Substance: ANASTROZOLE
  36. IMBRUVICA [Concomitant]
     Active Substance: IBRUTINIB
     Indication: CHRONIC LYMPHOCYTIC LEUKAEMIA
     Dates: start: 20180421
  37. LATANOPROST. [Concomitant]
     Active Substance: LATANOPROST
  38. NOVOLOG [Concomitant]
     Active Substance: INSULIN ASPART
  39. VITAMIN D3 [Concomitant]
     Active Substance: CHOLECALCIFEROL
  40. ISOSORBIDE. [Concomitant]
     Active Substance: ISOSORBIDE
  41. MECLIZINE [Concomitant]
     Active Substance: MECLIZINE HYDROCHLORIDE

REACTIONS (3)
  - Off label use [Unknown]
  - Product use in unapproved indication [Unknown]
  - Ulcer haemorrhage [Unknown]

NARRATIVE: CASE EVENT DATE: 20161105
